FAERS Safety Report 6921729-7 (Version None)
Quarter: 2010Q3

REPORT INFORMATION
  Report Type: 
  Country: None (occurrence: None)
  Receive Date: 20100812
  Receipt Date: 20100806
  Transmission Date: 20110219
  Serious: Yes (Hospitalization)
  Sender: FDA-Public Use
  Company Number: US-GILEAD-2010-0028436

PATIENT
  Sex: Female

DRUGS (12)
  1. LETAIRIS [Suspect]
     Indication: PULMONARY ARTERIAL HYPERTENSION
     Route: 048
     Dates: start: 20081018
  2. NITROFURANTOIN [Concomitant]
  3. AMBIEN [Concomitant]
  4. PREVACID [Concomitant]
  5. REMODULIN [Concomitant]
  6. ALBUTEROL [Concomitant]
  7. FLUTICASONE PROPIONATE [Concomitant]
  8. METOPIRONE [Concomitant]
  9. CITALOPRAM HYDROBROMIDE [Concomitant]
  10. VIAGRA [Concomitant]
  11. WARFARIN [Concomitant]
  12. FUROSEMIDE [Concomitant]

REACTIONS (2)
  - ANAEMIA [None]
  - DYSPNOEA [None]
